FAERS Safety Report 4654646-6 (Version None)
Quarter: 2005Q2

REPORT INFORMATION
  Report Type: 
  Country: None (occurrence: None)
  Receive Date: 20050504
  Receipt Date: 20050504
  Transmission Date: 20051028
  Serious: Yes (Other)
  Sender: FDA-Public Use
  Company Number: None

PATIENT
  Sex: Male

DRUGS (2)
  1. LACTULOSE [Suspect]
     Indication: CONSTIPATION
     Dosage: 1 TABLESPOON   ONCE A DAY  ORAL
     Route: 048
     Dates: start: 20050401, end: 20050501
  2. LACTULOSE [Suspect]
     Indication: ENCOPRESIS
     Dosage: 1 TABLESPOON   ONCE A DAY  ORAL
     Route: 048
     Dates: start: 20050401, end: 20050501

REACTIONS (2)
  - PSYCHOMOTOR HYPERACTIVITY [None]
  - RESTLESSNESS [None]
